FAERS Safety Report 4663772-7 (Version None)
Quarter: 2005Q2

REPORT INFORMATION
  Report Type: 
  Country: None (occurrence: None)
  Receive Date: 20050516
  Receipt Date: 20050504
  Transmission Date: 20051028
  Serious: Yes (Hospitalization, Other)
  Sender: FDA-Public Use
  Company Number: 179830

PATIENT
  Age: 50 Year
  Sex: Female
  Weight: 71.6683 kg

DRUGS (9)
  1. AVONEX [Suspect]
     Indication: MULTIPLE SCLEROSIS
     Dosage: 30 UG; QW; IM
     Route: 030
     Dates: start: 20020501, end: 20030801
  2. WELLBUTRIN [Concomitant]
  3. ANTIDEPRESSANTS (NOS) [Concomitant]
  4. NEURONTIN [Concomitant]
  5. AMANTADINE HCL [Concomitant]
  6. PROVIGIL [Concomitant]
  7. ECOTRIN [Concomitant]
  8. LEXAPRO [Concomitant]
  9. TOPROL-XL [Concomitant]

REACTIONS (17)
  - ANGINA PECTORIS [None]
  - AORTIC VALVE INCOMPETENCE [None]
  - ASTHENIA [None]
  - BLOOD ALKALINE PHOSPHATASE INCREASED [None]
  - BLOOD PRESSURE ABNORMAL [None]
  - CARDIAC FAILURE CONGESTIVE [None]
  - CHEST DISCOMFORT [None]
  - CHRONIC OBSTRUCTIVE PULMONARY DISEASE [None]
  - CONGESTIVE CARDIOMYOPATHY [None]
  - FATIGUE [None]
  - HYPERLIPIDAEMIA [None]
  - LUNG DISORDER [None]
  - LUNG INFECTION [None]
  - MITRAL VALVE INCOMPETENCE [None]
  - SKIN DISCOLOURATION [None]
  - VENTRICULAR DYSFUNCTION [None]
  - VITAMIN B12 INCREASED [None]
